FAERS Safety Report 11863074 (Version 2)
Quarter: 2017Q1

REPORT INFORMATION
  Report Type: Spontaneous
  Country: US (occurrence: US)
  Receive Date: 20151223
  Receipt Date: 20170215
  Transmission Date: 20170428
  Serious: Yes (Other)
  Sender: FDA-Public Use
  Company Number: US-ELI_LILLY_AND_COMPANY-US201512006759

PATIENT
  Sex: Female

DRUGS (5)
  1. CYMBALTA [Suspect]
     Active Substance: DULOXETINE HYDROCHLORIDE
     Indication: DEPRESSION
     Dosage: 20 MG, TID
     Route: 065
     Dates: start: 20151102
  2. CYMBALTA [Suspect]
     Active Substance: DULOXETINE HYDROCHLORIDE
     Indication: PAIN
     Dosage: 60 MG, QD
     Route: 065
  3. ZYPREXA [Concomitant]
     Active Substance: OLANZAPINE
     Indication: ANXIETY
     Dosage: 2.5 MG, QD
     Route: 048
  4. CYMBALTA [Suspect]
     Active Substance: DULOXETINE HYDROCHLORIDE
     Indication: FIBROMYALGIA
     Dosage: 90 MG, QD
     Route: 065
  5. ZYPREXA [Concomitant]
     Active Substance: OLANZAPINE
     Indication: AGITATION

REACTIONS (27)
  - Emotional poverty [Unknown]
  - Homicidal ideation [Not Recovered/Not Resolved]
  - Sensory disturbance [Unknown]
  - Dizziness [Unknown]
  - Insomnia [Not Recovered/Not Resolved]
  - Drug withdrawal syndrome [Unknown]
  - Anxiety [Unknown]
  - Hyperhidrosis [Unknown]
  - Personality change [Unknown]
  - Vertigo [Unknown]
  - Nausea [Unknown]
  - Fatigue [Not Recovered/Not Resolved]
  - Diarrhoea [Unknown]
  - Paraesthesia [Unknown]
  - Agitation [Unknown]
  - Nightmare [Unknown]
  - Headache [Unknown]
  - Vomiting [Unknown]
  - Irritability [Unknown]
  - Intentional product misuse [Unknown]
  - Thinking abnormal [Unknown]
  - Affect lability [Not Recovered/Not Resolved]
  - Hypomania [Unknown]
  - Seizure [Unknown]
  - Abnormal dreams [Unknown]
  - Confusional state [Unknown]
  - Suicidal ideation [Not Recovered/Not Resolved]
